FAERS Safety Report 7083533-1 (Version None)
Quarter: 2010Q4

REPORT INFORMATION
  Report Type: 
  Country: None (occurrence: None)
  Receive Date: 20101103
  Receipt Date: 20101103
  Transmission Date: 20110411
  Serious: Yes (Hospitalization)
  Sender: FDA-Public Use
  Company Number: None

PATIENT
  Sex: Male

DRUGS (15)
  1. NEPAFENAC UNKNOWN ALCON (NOT RELATED PER PRINCIPAL INVESTIGATOR) [Suspect]
     Indication: DIABETES MELLITUS
     Dosage: 1 GTT TID OPH
     Route: 047
     Dates: start: 20100301, end: 20100601
  2. NEPAFENAC UNKNOWN ALCON (NOT RELATED PER PRINCIPAL INVESTIGATOR) [Suspect]
     Indication: DIABETES MELLITUS
     Dosage: 1 GTT TID OPH
     Route: 047
     Dates: start: 20100701, end: 20101001
  3. GLIPIZIDE [Concomitant]
  4. SIMVASTATIN [Concomitant]
  5. BENAZEPRIL [Concomitant]
  6. HYDROCODONE [Concomitant]
  7. OMEPRAZOLE [Concomitant]
  8. GABAPENTIN [Concomitant]
  9. LEVAQUIN [Concomitant]
  10. RANINDINE [Concomitant]
  11. DIPHENOXYLATE HCL + ATROPINE SULFATE [Concomitant]
  12. MELOXICAM [Concomitant]
  13. VANCOMYCIN [Concomitant]
  14. SULFAMETHOXAZOLE/TRIMETHOPRIM [Concomitant]
  15. CIPROFLOXACIN [Concomitant]

REACTIONS (1)
  - DIABETIC FOOT INFECTION [None]
